FAERS Safety Report 25680917 (Version 3)
Quarter: 2025Q4

REPORT INFORMATION
  Report Type: Report from Study
  Country: US (occurrence: US)
  Receive Date: 20250814
  Receipt Date: 20251031
  Transmission Date: 20260117
  Serious: Yes (Hospitalization, Other)
  Sender: ABBVIE
  Company Number: US-ABBVIE-6414284

PATIENT
  Age: 60 Year
  Sex: Female
  Weight: 71.3 kg

DRUGS (38)
  1. RINVOQ [Suspect]
     Active Substance: UPADACITINIB
     Indication: Rheumatoid arthritis
     Dosage: FORM STRENGTH: 15 MG
     Route: 048
     Dates: start: 20221101, end: 202407
  2. RINVOQ [Suspect]
     Active Substance: UPADACITINIB
     Indication: Rheumatoid arthritis
     Dosage: FORM STRENGTH: 15 MG?TAKE BY MOUTH AT NOON.
     Route: 048
  3. GLUCOPHAGE XR [Concomitant]
     Active Substance: METFORMIN HYDROCHLORIDE
     Indication: Glucose tolerance impaired
     Dosage: 24 HR TABLET?TAKE ONE TABLET (500 90 TABLET 1 MG TOTAL) BY MOUTH ONE (1) TIME A DAY.
     Route: 048
  4. SALAGEN [Concomitant]
     Active Substance: PILOCARPINE HYDROCHLORIDE
     Indication: Dry mouth
     Dosage: TIME INTERVAL: 0.33333333 DAYS: TAKE ONE 5 MG TABLET BY MOUTH THREE TIMES A DAY.
     Route: 048
  5. DELTASONE [Concomitant]
     Active Substance: PREDNISONE
     Indication: Arthralgia
     Dosage: TAKE ONE AND A HALF 5 MG TABLETS (7.5 MG TOTAL) BY MOUTH.
     Route: 048
  6. MOTRIN [Concomitant]
     Active Substance: IBUPROFEN
     Indication: Arthralgia
  7. MOTRIN [Concomitant]
     Active Substance: IBUPROFEN
     Indication: Arthralgia
     Dosage: TAKE ONE TABLET (800MG TOTAL) BY MOUTH 2 (TWO) TIMES A DAY AS NEEDED FOR PAIN.
  8. ZOVIRAX [Concomitant]
     Active Substance: ACYCLOVIR
     Indication: Product used for unknown indication
  9. PROVENTIL HFA [Concomitant]
     Active Substance: ALBUTEROL SULFATE
     Indication: Wheezing
     Dosage: ALBUTEROL HFA INHALER?INHALE TWO PUFFS EVERY FOUR HOURS AS NEEDED
  10. ASTELIN [Concomitant]
     Active Substance: AZELASTINE HYDROCHLORIDE
     Indication: Product used for unknown indication
     Dosage: 137 MCG?USE TWO SPRAYS INTO EACH NOSTRIL TWICE A DAY.
     Route: 045
  11. SYMBICORT [Concomitant]
     Active Substance: BUDESONIDE\FORMOTEROL FUMARATE DIHYDRATE
     Indication: Product used for unknown indication
     Dosage: 160-4.5 MCG/ACTUATION INHALER: USE TWO INHALATIONS TWICE DAILY. RINSE MOUTH WITH WATER AFTER USE ...
     Dates: start: 20231212
  12. ZYRTEC-D [Concomitant]
     Active Substance: CETIRIZINE HYDROCHLORIDE\PSEUDOEPHEDRINE HYDROCHLORIDE
     Indication: Product used for unknown indication
     Dosage: DOSAGE: 5-120 MG, 12 HR TABLET, TAKE ONE TABLET BY MOUTH
     Dates: start: 20240502
  13. NEXIUM [Concomitant]
     Active Substance: ESOMEPRAZOLE MAGNESIUM
     Indication: Gastrooesophageal reflux disease
     Dosage: 40 MG DR CAPSULE?DOSAGE: TAKE 1 TABLET BY MOUTH?TIME: AT NOON
  14. NEXIUM [Concomitant]
     Active Substance: ESOMEPRAZOLE MAGNESIUM
     Indication: Gastrooesophageal reflux disease
     Dosage: TAKE BY MOUTH BEFORE BREAKFAST
  15. ESTRACE [Concomitant]
     Active Substance: ESTRADIOL
     Indication: Product used for unknown indication
     Dosage: 0.01% (0.1 MG/GRAM)?INSERT ONE GRAM VAGINALLY EVERY EVENING FOR TWO WEEKS THAN AFTER THE INITIAL ...
     Dates: start: 20231108
  16. FLONASE [Concomitant]
     Active Substance: FLUTICASONE PROPIONATE
     Indication: Product used for unknown indication
     Dosage: STRENGTH: 50 MCG/ACTUATION?DOSAGE: ONE SPRAY IN EACH NOSTRIL?FREQUENCY: MORNING AND AT BEDTIME
  17. ALBUTEROL\IPRATROPIUM [Concomitant]
     Active Substance: ALBUTEROL\IPRATROPIUM
     Indication: Product used for unknown indication
     Dosage: FORM: NEBULIZER SOLUTION?DOSAGE: 0.5-2.5 MG/3 ML
  18. MYRBETRIQ [Concomitant]
     Active Substance: MIRABEGRON
     Indication: Product used for unknown indication
     Dosage: TAKE FIFTY MG BY MOUTH ONCE A DAY AT NOON.
     Route: 048
  19. SINGULAIR [Concomitant]
     Active Substance: MONTELUKAST SODIUM
     Indication: Multiple allergies
     Dosage: TAKE ONE 10 MG TABLET BY MOUTH NIGHTLY.
     Route: 048
     Dates: start: 20240626
  20. NAPROSYN [Concomitant]
     Active Substance: NAPROXEN
     Indication: Product used for unknown indication
     Route: 048
  21. VALTREX [Concomitant]
     Active Substance: VALACYCLOVIR HYDROCHLORIDE
     Indication: Product used for unknown indication
     Dosage: TAKE ONE 1,000 MG TABLET BY MOUTH DAILY AS NEEDED.
     Route: 048
     Dates: start: 20240712
  22. ZOFRAN [Concomitant]
     Active Substance: ONDANSETRON HYDROCHLORIDE
     Indication: Product used for unknown indication
     Dates: start: 20240712
  23. CLARITIN-D 12 HOUR [Concomitant]
     Active Substance: LORATADINE\PSEUDOEPHEDRINE SULFATE
     Indication: Product used for unknown indication
     Dosage: 5-120 MG 12 HR TABLET
  24. LOVENOX [Concomitant]
     Active Substance: ENOXAPARIN SODIUM
     Indication: Product used for unknown indication
     Dosage: 40 MG/0.4 ML SUBCUTANEOUS SYRINGE ANTICOAGULANT 40MG
     Route: 058
  25. HUMALOG [Concomitant]
     Active Substance: INSULIN LISPRO
     Indication: Product used for unknown indication
     Dosage: 100 UNITS/ML SUBCUTANEOUS INJECTION PEN
     Route: 058
  26. PROTONIX [Concomitant]
     Active Substance: PANTOPRAZOLE SODIUM
     Indication: Product used for unknown indication
  27. CALCIUM CARBONATE\CHOLECALCIFEROL [Concomitant]
     Active Substance: CALCIUM CARBONATE\CHOLECALCIFEROL
     Indication: Product used for unknown indication
     Dosage: AT NOON.
  28. CALCIUM CITRATE\CHOLECALCIFEROL [Concomitant]
     Active Substance: CALCIUM CITRATE\CHOLECALCIFEROL
     Indication: Product used for unknown indication
     Dosage: 200 MG-6.25 MCG (250 UNIT) TABLET?TAKE ONE TABLET BY MOUTH ONE (1) TIME A DAY.
     Route: 048
  29. CRESTOR [Concomitant]
     Active Substance: ROSUVASTATIN CALCIUM
     Indication: Product used for unknown indication
  30. DEXTROSE [Concomitant]
     Active Substance: DEXTROSE MONOHYDRATE
     Indication: Product used for unknown indication
     Dosage: 50 ML INJECTION SYRINGE
  31. ROBITUSSIN DM [Concomitant]
     Active Substance: DEXTROMETHORPHAN HYDROBROMIDE\GUAIFENESIN
     Indication: Product used for unknown indication
     Dosage: 10-100 MG/5 ML SYRUP, 10 ML
  32. TYLENOL [Concomitant]
     Active Substance: ACETAMINOPHEN
     Indication: Product used for unknown indication
  33. NORCO [Concomitant]
     Active Substance: ACETAMINOPHEN\HYDROCODONE BITARTRATE
     Indication: Product used for unknown indication
     Dosage: 5-325 MG TABLET, 1 TABLET
  34. MAGNESIUM HYDROXIDE [Concomitant]
     Active Substance: MAGNESIUM HYDROXIDE
     Indication: Product used for unknown indication
     Dosage: 400 MG/5 ML SUSPENSION, 30 ML
  35. BENADRYL [Concomitant]
     Active Substance: DIPHENHYDRAMINE HYDROCHLORIDE
     Indication: Product used for unknown indication
     Dosage: 25 MG INJECTION
  36. K-DUR [Concomitant]
     Active Substance: POTASSIUM CHLORIDE
     Indication: Product used for unknown indication
  37. MAGNESIUM OXIDE [Concomitant]
     Active Substance: MAGNESIUM OXIDE
     Indication: Product used for unknown indication
  38. MYDRIACYL [Concomitant]
     Active Substance: TROPICAMIDE
     Indication: Pupil dilation procedure

REACTIONS (44)
  - Optic ischaemic neuropathy [Recovered/Resolved with Sequelae]
  - Myalgia [Not Recovered/Not Resolved]
  - Mean cell haemoglobin concentration decreased [Unknown]
  - Red cell distribution width increased [Unknown]
  - Papilloedema [Unknown]
  - Vision blurred [Unknown]
  - White blood cell count increased [Unknown]
  - Red blood cell count decreased [Unknown]
  - Haemoglobin decreased [Unknown]
  - Haematocrit decreased [Unknown]
  - Lymphocyte percentage decreased [Unknown]
  - Monocyte percentage increased [Unknown]
  - Immature granulocyte percentage increased [Unknown]
  - Blood glucose increased [Unknown]
  - Aspartate aminotransferase increased [Unknown]
  - Blood urea increased [Unknown]
  - Pharyngitis [Unknown]
  - Acute sinusitis [Unknown]
  - Cough [Unknown]
  - Hypersomnia [Unknown]
  - Iron deficiency [Unknown]
  - Iron deficiency anaemia [Unknown]
  - Haemorrhage [Unknown]
  - Back pain [Unknown]
  - Rhinorrhoea [Unknown]
  - Nausea [Recovered/Resolved]
  - Nausea [Unknown]
  - Vomiting [Unknown]
  - Diarrhoea [Unknown]
  - Neutrophil count increased [Unknown]
  - Monocyte count increased [Unknown]
  - Immature granulocyte count increased [Unknown]
  - Blood alkaline phosphatase increased [Unknown]
  - Normocytic anaemia [Unknown]
  - Rash pruritic [Unknown]
  - Pharyngitis streptococcal [Unknown]
  - Upper respiratory tract infection [Unknown]
  - Urinary tract infection [Unknown]
  - Obstructive sleep apnoea syndrome [Unknown]
  - Cataract nuclear [Unknown]
  - Pseudopapilloedema [Unknown]
  - Blindness [Unknown]
  - Headache [Unknown]
  - Sinus disorder [Unknown]

NARRATIVE: CASE EVENT DATE: 20240219
